FAERS Safety Report 16346278 (Version 6)
Quarter: 2020Q3

REPORT INFORMATION
  Report Type: Spontaneous
  Country: US (occurrence: US)
  Receive Date: 20190523
  Receipt Date: 20200930
  Transmission Date: 20201102
  Serious: No
  Sender: FDA-Public Use
  Company Number: US-PFIZER INC-2019058383

PATIENT
  Age: 54 Year
  Sex: Female
  Weight: 108.8 kg

DRUGS (5)
  1. VICTOZA [Concomitant]
     Active Substance: LIRAGLUTIDE
     Dosage: UNK (OVER A MONTH)
  2. LYRICA [Suspect]
     Active Substance: PREGABALIN
     Indication: POLYNEUROPATHY
     Dosage: 100 MG, 4X/DAY
     Route: 048
     Dates: start: 20190419
  3. LYRICA [Suspect]
     Active Substance: PREGABALIN
     Indication: NEUROPATHY PERIPHERAL
     Dosage: 100 MG, 3X/DAY
     Dates: start: 2019
  4. LYRICA [Suspect]
     Active Substance: PREGABALIN
     Indication: NEURALGIA
     Dosage: 400 MG, DAILY(1 CAPSULE IN MORNING 1 CAPSULE IN THE AFTERNOON, AND 2 CAPSULES IN THE EVENING)
     Route: 048
  5. LYRICA [Suspect]
     Active Substance: PREGABALIN
     Indication: PAIN
     Dosage: 400 MG, DAILY (SIG: 1Q AM 1Q AFTERNOON 2 QHS)

REACTIONS (2)
  - Pain in extremity [Unknown]
  - Intentional product misuse [Unknown]
